FAERS Safety Report 7659550-7 (Version None)
Quarter: 2011Q3

REPORT INFORMATION
  Report Type: 
  Country: None (occurrence: None)
  Receive Date: 20110805
  Receipt Date: 20110803
  Transmission Date: 20111222
  Serious: Yes (Other)
  Sender: FDA-Public Use
  Company Number: US-PFIZER INC-2010112000

PATIENT
  Sex: Female
  Weight: 88 kg

DRUGS (5)
  1. MORPHINE [Concomitant]
     Dosage: UNK
  2. OXYCODONE [Concomitant]
     Dosage: UNK
  3. LYRICA [Suspect]
     Indication: NERVE INJURY
     Dosage: 225 MG, 2X/DAY
     Route: 048
     Dates: start: 20090101
  4. LYRICA [Suspect]
     Indication: HERPES ZOSTER
     Dosage: 200 MG, 3X/DAY
     Dates: start: 20100101
  5. CLONIDINE [Concomitant]
     Indication: HYPERTENSION
     Dosage: 25 MG,DAILY

REACTIONS (7)
  - TREMOR [None]
  - ARTHRITIS [None]
  - WITHDRAWAL SYNDROME [None]
  - HYPERHIDROSIS [None]
  - NAUSEA [None]
  - MALAISE [None]
  - VITAMIN D DECREASED [None]
